FAERS Safety Report 6675779-9 (Version None)
Quarter: 2010Q2

REPORT INFORMATION
  Report Type: 
  Country: None (occurrence: None)
  Receive Date: 20100411
  Receipt Date: 20100401
  Transmission Date: 20101027
  Serious: Yes (Hospitalization)
  Sender: FDA-Public Use
  Company Number: DE-BRISTOL-MYERS SQUIBB COMPANY-15050446

PATIENT
  Age: 36 Year
  Sex: Female

DRUGS (3)
  1. PACLITAXEL [Suspect]
     Indication: BREAST CANCER
     Route: 042
     Dates: start: 20090929, end: 20091215
  2. LAPATINIB [Suspect]
     Indication: BREAST CANCER
     Route: 048
     Dates: start: 20090929, end: 20091227
  3. DOCETAXEL [Suspect]
     Indication: BREAST CANCER
     Dates: end: 20100120

REACTIONS (1)
  - RENAL FAILURE ACUTE [None]
